FAERS Safety Report 9727693 (Version 1)
Quarter: 2013Q4

REPORT INFORMATION
  Report Type: Spontaneous
  Country: DE (occurrence: DE)
  Receive Date: 20131203
  Receipt Date: 20131203
  Transmission Date: 20140711
  Serious: Yes (Hospitalization)
  Sender: FDA-Public Use
  Company Number: DE-ALLERGAN-1318638US

PATIENT
  Age: 41 Year
  Sex: Female

DRUGS (6)
  1. BOTOX [Suspect]
     Indication: TORTICOLLIS
     Dosage: UNK
     Dates: start: 20130822, end: 20130822
  2. BOTOX [Suspect]
     Dosage: UNK
     Dates: start: 201309, end: 201309
  3. BETAHISTINE [Concomitant]
     Dosage: UNK
     Route: 048
  4. PENTAOXIFYLLINE [Concomitant]
     Dosage: UNK
     Route: 048
  5. PENTAOXIFYLLINE [Concomitant]
     Dosage: UNK
     Route: 042
  6. SOLU-DECORTIN [Concomitant]
     Dosage: UNK
     Route: 042

REACTIONS (8)
  - Tinnitus [Not Recovered/Not Resolved]
  - Heart rate increased [Not Recovered/Not Resolved]
  - Haemorrhage subcutaneous [Not Recovered/Not Resolved]
  - Hypertension [Not Recovered/Not Resolved]
  - Oesophageal pain [Not Recovered/Not Resolved]
  - Burning sensation [Not Recovered/Not Resolved]
  - Paraesthesia [Not Recovered/Not Resolved]
  - Malaise [Not Recovered/Not Resolved]
